FAERS Safety Report 7306267-4 (Version None)
Quarter: 2011Q1

REPORT INFORMATION
  Report Type: 
  Country: None (occurrence: None)
  Receive Date: 20110222
  Receipt Date: 20110209
  Transmission Date: 20110831
  Serious: Yes (Hospitalization, Other)
  Sender: FDA-Public Use
  Company Number: PHHY2010JP78875

PATIENT
  Sex: Male
  Weight: 63 kg

DRUGS (11)
  1. LASIX [Concomitant]
     Indication: HYPERTENSION
     Dosage: 10 MG, UNK
     Route: 048
     Dates: start: 20090121
  2. ZYLORIC [Concomitant]
     Indication: HYPERURICAEMIA
     Dosage: 100 MG, UNK
     Route: 048
     Dates: start: 19920424
  3. MYONAL [Concomitant]
     Dosage: 100 MG, UNK
     Route: 048
     Dates: start: 20000414
  4. RASILEZ [Suspect]
     Indication: HYPERTENSION
     Dosage: 150 MG DAILY
     Route: 048
     Dates: start: 20100414, end: 20101112
  5. ADALAT CC [Concomitant]
     Indication: HYPERTENSION
     Dosage: 40 MG, UNK
     Route: 048
     Dates: start: 20061016
  6. MICARDIS [Interacting]
     Dosage: 40 MG DAILY
     Route: 048
     Dates: start: 20101119
  7. ALOSENN [Concomitant]
     Indication: CONSTIPATION
     Dosage: 1.5 G, UNK
     Route: 048
     Dates: start: 19920424
  8. PURSENNID [Concomitant]
     Indication: CONSTIPATION
     Dosage: 24 MG, UNK
     Route: 048
     Dates: start: 19920424
  9. CARDENALIN [Concomitant]
     Indication: HYPERTENSION
     Dosage: 2 MG, UNK
     Dates: start: 20040625
  10. MICARDIS [Interacting]
     Indication: HYPERTENSION
     Dosage: 40 MG DAILY
     Route: 048
     Dates: start: 20040712, end: 20101112
  11. ALMARL [Concomitant]
     Indication: HYPERTENSION
     Dosage: 20 MG, UNK
     Route: 048
     Dates: start: 19990319

REACTIONS (4)
  - HYPERKALAEMIA [None]
  - CAROTID ARTERY STENOSIS [None]
  - RENAL IMPAIRMENT [None]
  - RENAL ARTERY STENOSIS [None]
